FAERS Safety Report 4349372-7 (Version None)
Quarter: 2004Q2

REPORT INFORMATION
  Report Type: 
  Country: None (occurrence: None)
  Receive Date: 20040428
  Receipt Date: 20020905
  Transmission Date: 20050107
  Serious: Yes (Hospitalization, Other)
  Sender: FDA-Public Use
  Company Number: US-BRISTOL-MYERS SQUIBB COMPANY-12027819

PATIENT
  Age: 43 Year
  Sex: Male

DRUGS (5)
  1. BMS224818 [Concomitant]
     Dosage: NOT REALLOCATED
     Route: 042
     Dates: start: 20020624, end: 20020902
  2. METHYLPREDNISOLONE [Suspect]
  3. BASILIXIMAB [Suspect]
  4. MYCOPHENOLATE MOFETIL [Suspect]
     Dates: start: 20020624
  5. PREDNISONE [Suspect]
     Dates: start: 20020622

REACTIONS (2)
  - CYTOMEGALOVIRUS INFECTION [None]
  - TRANSPLANT REJECTION [None]
